FAERS Safety Report 24007716 (Version 1)
Quarter: 2024Q2

REPORT INFORMATION
  Report Type: Report from Study
  Country: US (occurrence: US)
  Receive Date: 20240625
  Receipt Date: 20240625
  Transmission Date: 20240716
  Serious: No
  Sender: FDA-Public Use
  Company Number: US-ACADIA PHARMACEUTICALS INC.-ACA-2024-PIM-002680

PATIENT
  Sex: Male

DRUGS (4)
  1. NUPLAZID [Suspect]
     Active Substance: PIMAVANSERIN TARTRATE
     Indication: Parkinson^s disease
     Dosage: 34 MILLIGRAM, QD
     Route: 048
     Dates: start: 20230717
  2. CHOLECALCIFEROL [Concomitant]
     Active Substance: CHOLECALCIFEROL
  3. B COMPLEX B12 [Concomitant]
  4. MAGNESIUM [Concomitant]
     Active Substance: MAGNESIUM

REACTIONS (1)
  - Blood pressure decreased [Unknown]
